FAERS Safety Report 16143584 (Version 2)
Quarter: 2019Q2

REPORT INFORMATION
  Report Type: Report from Study
  Country: BR (occurrence: BR)
  Receive Date: 20190401
  Receipt Date: 20190603
  Transmission Date: 20190711
  Serious: Yes (Hospitalization)
  Sender: FDA-Public Use
  Company Number: PHHY2018BR012460

PATIENT
  Age: 41 Year
  Sex: Female
  Weight: 78 kg

DRUGS (1)
  1. COSENTYX [Suspect]
     Active Substance: SECUKINUMAB
     Indication: ANKYLOSING SPONDYLITIS
     Dosage: UNK
     Route: 058
     Dates: start: 20170521

REACTIONS (9)
  - Arthralgia [Not Recovered/Not Resolved]
  - Weight increased [Unknown]
  - Renal pain [Unknown]
  - Swelling [Not Recovered/Not Resolved]
  - Concomitant disease aggravated [Unknown]
  - Nephrolithiasis [Unknown]
  - Tuberculin test positive [Recovered/Resolved]
  - Bone pain [Not Recovered/Not Resolved]
  - Headache [Unknown]

NARRATIVE: CASE EVENT DATE: 201903
